FAERS Safety Report 5478482-6 (Version None)
Quarter: 2007Q4

REPORT INFORMATION
  Report Type: 
  Country: None (occurrence: None)
  Receive Date: 20071005
  Receipt Date: 20070924
  Transmission Date: 20080405
  Serious: Yes (Death, Hospitalization)
  Sender: FDA-Public Use
  Company Number: UA-ROCHE-514722

PATIENT
  Age: 62 Year
  Sex: Female
  Weight: 74 kg

DRUGS (3)
  1. CAPECITABINE [Suspect]
     Dosage: 3600 MG, UNK
     Route: 065
     Dates: start: 20070529
  2. BLINDED BEVACIZUMAB [Suspect]
     Dosage: 1110 MG, Q3W
     Route: 042
     Dates: start: 20070529
  3. BLINDED PLACEBO [Suspect]
     Dosage: 1110 MG, Q3W
     Route: 042
     Dates: start: 20070529

REACTIONS (5)
  - BREAST CANCER [None]
  - MALIGNANT NEOPLASM PROGRESSION [None]
  - PULMONARY EMBOLISM [None]
  - PULMONARY THROMBOSIS [None]
  - RESPIRATORY FAILURE [None]
